FAERS Safety Report 19703507 (Version 2)
Quarter: 2021Q3

REPORT INFORMATION
  Report Type: Spontaneous
  Country: IN (occurrence: IN)
  Receive Date: 20210816
  Receipt Date: 20210825
  Transmission Date: 20211014
  Serious: Yes (Other)
  Sender: FDA-Public Use
  Company Number: ALC2021IN004642

PATIENT
  Age: 71 Year
  Sex: Male

DRUGS (6)
  1. BSS [Suspect]
     Active Substance: CALCIUM CHLORIDE\MAGNESIUM CHLORIDE\POTASSIUM CHLORIDE\SODIUM ACETATE\SODIUM CHLORIDE\SODIUM CITRATE
     Indication: CATARACT OPERATION
     Route: 065
  2. POVIDONE?IODINE. [Interacting]
     Active Substance: POVIDONE-IODINE
     Indication: PRODUCT USED FOR UNKNOWN INDICATION
     Route: 065
  3. POVIDONE?IODINE. [Suspect]
     Active Substance: POVIDONE-IODINE
     Dosage: UNK
     Route: 061
  4. LIDOCAINE. [Suspect]
     Active Substance: LIDOCAINE
     Indication: PRODUCT USED FOR UNKNOWN INDICATION
     Route: 065
  5. GATIFLOXACIN. [Suspect]
     Active Substance: GATIFLOXACIN
     Indication: PRODUCT USED FOR UNKNOWN INDICATION
     Dosage: 3 DAYS PRIOR
     Route: 047
  6. POVIDONE?IODINE. [Suspect]
     Active Substance: POVIDONE-IODINE
     Indication: PRODUCT USED FOR UNKNOWN INDICATION
     Route: 003

REACTIONS (8)
  - Eye inflammation [Recovering/Resolving]
  - Vitreous disorder [Recovering/Resolving]
  - Corneal oedema [Recovering/Resolving]
  - Vitreous haze [Recovering/Resolving]
  - Anterior chamber fibrin [Recovering/Resolving]
  - Hypopyon [Recovering/Resolving]
  - Toxic anterior segment syndrome [Recovering/Resolving]
  - Aqueous fibrin [Recovering/Resolving]

NARRATIVE: CASE EVENT DATE: 20210730
